FAERS Safety Report 6996727-8 (Version None)
Quarter: 2010Q3

REPORT INFORMATION
  Report Type: 
  Country: None (occurrence: None)
  Receive Date: 20100918
  Receipt Date: 20090619
  Transmission Date: 20110219
  Serious: No
  Sender: FDA-Public Use
  Company Number: US-WYE-H09870509

PATIENT
  Age: 58 Year
  Sex: Female
  Weight: 67.19 kg

DRUGS (7)
  1. ALAVERT [Suspect]
     Indication: EYE PRURITUS
     Dates: start: 20090618, end: 20090618
  2. ALAVERT [Suspect]
     Indication: LACRIMATION INCREASED
  3. ALAVERT [Suspect]
     Indication: RHINORRHOEA
  4. LISINOPRIL [Concomitant]
  5. SIMVASTATIN [Concomitant]
  6. DIOVAN [Concomitant]
  7. KLONOPIN [Concomitant]

REACTIONS (1)
  - THROAT TIGHTNESS [None]
